FAERS Safety Report 8777101 (Version 2)
Quarter: 2012Q4

REPORT INFORMATION
  Report Type: 
  Country: US (occurrence: US)
  Receive Date: 20120911
  Receipt Date: 20121009
  Transmission Date: 20130627
  Serious: No
  Sender: FDA-Public Use
  Company Number: US-ASTRAZENECA-2012SE64536

PATIENT
  Age: 31 Year
  Sex: Female
  Weight: 54.4 kg

DRUGS (3)
  1. SEROQUEL [Suspect]
     Indication: BIPOLAR DISORDER
     Dosage: generic
     Route: 048
     Dates: start: 201204, end: 20120821
  2. SEROQUEL [Suspect]
     Indication: BIPOLAR DISORDER
     Route: 048
     Dates: start: 201208
  3. TRILEPTAL [Concomitant]
     Indication: BIPOLAR DISORDER

REACTIONS (8)
  - Disturbance in attention [Unknown]
  - Adverse drug reaction [Unknown]
  - Confusional state [Recovered/Resolved]
  - Headache [Recovered/Resolved]
  - Abdominal discomfort [Recovered/Resolved]
  - Constipation [Recovered/Resolved]
  - Sluggishness [Unknown]
  - Vomiting [Unknown]
